FAERS Safety Report 11654173 (Version 2)
Quarter: 2015Q4

REPORT INFORMATION
  Report Type: Spontaneous
  Country: JP (occurrence: JP)
  Receive Date: 20151023
  Receipt Date: 20151202
  Transmission Date: 20160304
  Serious: Yes (Hospitalization)
  Sender: FDA-Public Use
  Company Number: JP-009507513-1510JPN010852

PATIENT
  Age: 79 Year
  Sex: Male

DRUGS (3)
  1. BONALON [Suspect]
     Active Substance: ALENDRONATE SODIUM
     Indication: SPINAL COMPRESSION FRACTURE
  2. GOSHA-JINKI-GAN [Concomitant]
     Active Substance: HERBALS
     Dosage: 7.5 GRAM/ DAY
     Route: 048
     Dates: start: 20150703, end: 20150725
  3. BONALON [Suspect]
     Active Substance: ALENDRONATE SODIUM
     Indication: OSTEOPOROSIS
     Dosage: 5 MG DAILY
     Route: 048
     Dates: start: 20150704, end: 20150725

REACTIONS (1)
  - Anaemia [Recovered/Resolved]

NARRATIVE: CASE EVENT DATE: 20150812
